FAERS Safety Report 8309565-0 (Version None)
Quarter: 2012Q2

REPORT INFORMATION
  Report Type: 
  Country: None (occurrence: None)
  Receive Date: 20120425
  Receipt Date: 20120420
  Transmission Date: 20120825
  Serious: No
  Sender: FDA-Public Use
  Company Number: US-PFIZER INC-2012098589

PATIENT
  Sex: Female
  Weight: 61.224 kg

DRUGS (7)
  1. ADVIL MIGRAINE LIQUI-GELS [Suspect]
     Indication: MIGRAINE
  2. LORTAB [Suspect]
     Indication: PAIN
     Dosage: UNK
  3. TOPAMAX [Concomitant]
     Indication: MIGRAINE
     Dosage: UNK
  4. ADVIL MIGRAINE LIQUI-GELS [Suspect]
     Indication: BACK INJURY
     Dosage: 200 MG, AS NEEDED
  5. SYNTHROID [Concomitant]
     Indication: THYROID DISORDER
     Dosage: 25 UG, DAILY
  6. ADVIL MIGRAINE LIQUI-GELS [Suspect]
     Indication: PAIN
  7. ADVIL MIGRAINE LIQUI-GELS [Suspect]
     Indication: FIBROMYALGIA

REACTIONS (3)
  - INCORRECT DOSE ADMINISTERED [None]
  - BLOOD CHOLESTEROL INCREASED [None]
  - PAIN [None]
